FAERS Safety Report 6240762-4 (Version None)
Quarter: 2009Q2

REPORT INFORMATION
  Report Type: 
  Country: None (occurrence: None)
  Receive Date: 20090623
  Receipt Date: 20090612
  Transmission Date: 20091009
  Serious: Yes (Hospitalization)
  Sender: FDA-Public Use
  Company Number: JP-PFIZER INC-2009228042

PATIENT
  Age: 77 Year

DRUGS (9)
  1. SUNITINIB MALATE [Suspect]
     Indication: GASTROINTESTINAL STROMAL TUMOUR
     Dosage: 50 MG, 1X/DAY
     Route: 048
     Dates: start: 20090423
  2. NOVAMIN [Concomitant]
     Dosage: 15 MG/DAY 3 TIMES A DAY
     Route: 048
  3. MAG-LAX [Concomitant]
     Dosage: UNK
     Route: 048
  4. RABEPRAZOLE [Concomitant]
     Dosage: UNK
     Route: 048
  5. PURSENNID [Concomitant]
     Dosage: UNK
     Route: 048
  6. ZOLPIDEM TARTRATE [Concomitant]
     Dosage: UNK
     Route: 048
  7. LOXONIN [Concomitant]
     Dosage: 180 MG/DAY 3 TIMES A DAY
     Route: 048
  8. GABAPENTIN [Concomitant]
     Dosage: UNK
     Route: 048
  9. FENTANYL [Concomitant]
     Dosage: 16.8 MG/DAY ONCE A DAY
     Route: 062

REACTIONS (3)
  - ANOREXIA [None]
  - CLAVICLE FRACTURE [None]
  - NEUTROPHIL COUNT DECREASED [None]
